FAERS Safety Report 6668581-5 (Version None)
Quarter: 2010Q2

REPORT INFORMATION
  Report Type: 
  Country: None (occurrence: None)
  Receive Date: 20100401
  Receipt Date: 20100320
  Transmission Date: 20101027
  Serious: Yes (Death)
  Sender: FDA-Public Use
  Company Number: 007003

PATIENT
  Age: 74 Year
  Sex: Male

DRUGS (8)
  1. PLETAL [Suspect]
     Indication: ARTERIOSCLEROSIS OBLITERANS
     Dosage: 100 MG, BID ORAL
     Route: 048
     Dates: start: 20090128, end: 20090618
  2. EPADEL (ETHYL ICOSAPENTATE) CAPSULE [Concomitant]
  3. ONE-ALPHA (ALFACALCIDOL) [Concomitant]
  4. SHIGMABITAN (BENFOTIAMINE_B6_B12 COMBINED DRUG) CAPSULE [Concomitant]
  5. BUP-4 (PROPIVERINE HYDROCHLORIDE) TABLET [Concomitant]
  6. LENDORMIN D (BROTIZOLAM) TABLET [Concomitant]
  7. OPALMON (LIMAPROST) TABLET [Concomitant]
  8. BONALON (ALENDRONATE SODIUM HYDRATE) TABLET [Concomitant]

REACTIONS (2)
  - CARDIAC FAILURE ACUTE [None]
  - CARDIO-RESPIRATORY ARREST [None]
